FAERS Safety Report 11025256 (Version 1)
Quarter: 2015Q2

REPORT INFORMATION
  Report Type: Spontaneous
  Country: US (occurrence: US)
  Receive Date: 20150414
  Receipt Date: 20150414
  Transmission Date: 20150821
  Serious: No
  Sender: FDA-Public Use
  Company Number: US-PFIZER INC-2015124794

PATIENT
  Sex: Female
  Weight: 89 kg

DRUGS (1)
  1. BACITRACIN. [Suspect]
     Active Substance: BACITRACIN
     Dosage: UNK
     Route: 061
     Dates: start: 20140818

REACTIONS (2)
  - Drug hypersensitivity [Unknown]
  - Rash [Unknown]
